FAERS Safety Report 21280955 (Version 1)
Quarter: 2022Q3

REPORT INFORMATION
  Report Type: Spontaneous
  Country: US (occurrence: None)
  Receive Date: 20220831
  Receipt Date: 20220831
  Transmission Date: 20221026
  Serious: No
  Sender: FDA-Public Use
  Company Number: None

PATIENT
  Age: 65 Year
  Sex: Female
  Weight: 131.09 kg

DRUGS (2)
  1. ACTEMRA [Suspect]
     Active Substance: TOCILIZUMAB
     Indication: Rheumatoid arthritis
     Dosage: INFUSE 525MG OR 4MG/KG INTRAVENOUSLY OVER 1 HOUR EVERY 4 WEEKS AS DIRECTED?
     Route: 042
     Dates: start: 202206
  2. ACTEMRA [Suspect]
     Active Substance: TOCILIZUMAB
     Dosage: OTHER FREQUENCY : 1 HR Q 4 WEEKS;?
     Route: 042
     Dates: start: 202206

REACTIONS (2)
  - COVID-19 [None]
  - Therapy interrupted [None]
